FAERS Safety Report 6372698-2 (Version None)
Quarter: 2009Q3

REPORT INFORMATION
  Report Type: 
  Country: None (occurrence: None)
  Receive Date: 20090924
  Receipt Date: 20090410
  Transmission Date: 20100115
  Serious: Yes (Other)
  Sender: FDA-Public Use
  Company Number: US-ASTRAZENECA-2008UW27480

PATIENT
  Sex: Female
  Weight: 95.3 kg

DRUGS (3)
  1. SEROQUEL [Suspect]
     Indication: HALLUCINATION, AUDITORY
     Dosage: 100, 200, AND 300 MG
     Route: 048
     Dates: start: 19990101, end: 20010601
  2. AMATRICTOLINE [Concomitant]
  3. CLOVAETAM [Concomitant]

REACTIONS (2)
  - DIABETES MELLITUS [None]
  - PANCREATITIS [None]
